FAERS Safety Report 5066046-8 (Version None)
Quarter: 2006Q3

REPORT INFORMATION
  Report Type: 
  Country: None (occurrence: None)
  Receive Date: 20060731
  Receipt Date: 20050509
  Transmission Date: 20061208
  Serious: No
  Sender: FDA-Public Use
  Company Number: US-AMGEN-US132059

PATIENT
  Sex: Female
  Weight: 54.5 kg

DRUGS (3)
  1. KINERET [Suspect]
     Indication: JUVENILE ARTHRITIS
     Route: 058
     Dates: start: 20041001, end: 20050518
  2. PREDNISONE [Concomitant]
  3. FOSAMAX [Concomitant]

REACTIONS (4)
  - ADVERSE DRUG REACTION [None]
  - CONDITION AGGRAVATED [None]
  - DRUG ERUPTION [None]
  - JUVENILE ARTHRITIS [None]
